FAERS Safety Report 7403676-X (Version None)
Quarter: 2011Q2

REPORT INFORMATION
  Report Type: 
  Country: None (occurrence: None)
  Receive Date: 20110408
  Receipt Date: 20110328
  Transmission Date: 20111010
  Serious: Yes (Hospitalization, Other)
  Sender: FDA-Public Use
  Company Number: PHHY2011DE12155

PATIENT
  Age: 17 Year
  Sex: Female

DRUGS (1)
  1. METHOTREXATE [Suspect]
     Indication: ACUTE LYMPHOCYTIC LEUKAEMIA
     Route: 037

REACTIONS (10)
  - CARDIOTOXICITY [None]
  - FACIAL PARESIS [None]
  - PSEUDOMONAS INFECTION [None]
  - TOXIC ENCEPHALOPATHY [None]
  - DYSARTHRIA [None]
  - MUSCULAR WEAKNESS [None]
  - DYSPHAGIA [None]
  - HEMIPARESIS [None]
  - LEUKOPENIA [None]
  - CENTRAL NERVOUS SYSTEM LESION [None]
